FAERS Safety Report 20892024 (Version 2)
Quarter: 2022Q3

REPORT INFORMATION
  Report Type: Spontaneous
  Country: US (occurrence: US)
  Receive Date: 20220530
  Receipt Date: 20220805
  Transmission Date: 20221027
  Serious: Yes (Hospitalization, Other)
  Sender: FDA-Public Use
  Company Number: US-BRISTOL-MYERS SQUIBB COMPANY-2022-042703

PATIENT
  Age: 79 Year
  Sex: Male
  Weight: 82.5 kg

DRUGS (18)
  1. POMALYST [Suspect]
     Active Substance: POMALIDOMIDE
     Indication: Plasma cell myeloma
     Dosage: 4 MG 1 PO QO 21 DAYS ON 7 OFF
     Route: 048
     Dates: start: 20210903, end: 20220323
  2. VITAMIN B COMPLEX [Concomitant]
     Active Substance: CYANOCOBALAMIN\DEXPANTHENOL\NIACINAMIDE\PYRIDOXINE HYDROCHLORIDE\RIBOFLAVIN 5^-PHOSPHATE SODIUM\THIA
     Indication: Product used for unknown indication
     Dosage: B COMPLEX 100 0.4 MG TABLET
     Route: 065
  3. BACLOFEN [Concomitant]
     Active Substance: BACLOFEN
     Indication: Hiccups
     Dosage: BACLOFEN 10 MG TABLET
     Route: 048
     Dates: start: 20210126
  4. BACTRIM DS [Concomitant]
     Active Substance: SULFAMETHOXAZOLE\TRIMETHOPRIM
     Indication: Infection
     Dosage: BACTRIM DS 800 MG-160 MG TABLET?80/160MG 1 PO BID * 30
     Route: 065
     Dates: start: 20220102, end: 20220103
  5. BENADRYL [Concomitant]
     Active Substance: DIPHENHYDRAMINE HYDROCHLORIDE
     Indication: Product used for unknown indication
     Dosage: BENADRYL 25 MG CAPSULE
     Route: 065
  6. BUSPIRONE [Concomitant]
     Active Substance: BUSPIRONE HYDROCHLORIDE
     Indication: Product used for unknown indication
     Dosage: BUSPIRONE 15 MG TABLET
     Route: 065
  7. CEPHALEXIN [Concomitant]
     Active Substance: CEPHALEXIN
     Indication: Product used for unknown indication
     Dosage: CEPHALEXIN 500 MG TABLET
     Route: 065
  8. DECADRON [DEXAMETHASONE SODIUM PHOSPHATE;NEOMYCIN SULFATE] [Concomitant]
     Indication: Product used for unknown indication
     Dosage: DECADRON 4 MG TABLET
     Route: 048
     Dates: start: 20210903
  9. ELIQUIS [Concomitant]
     Active Substance: APIXABAN
     Indication: Coagulation time shortened
     Dosage: ELIQUIS 5 MG TABLET BID
     Route: 048
     Dates: start: 20210608
  10. FISH OIL [Concomitant]
     Active Substance: FISH OIL
     Indication: Product used for unknown indication
     Dosage: FISH OIL 300 MG-1,000 MG CAPSULE
     Route: 065
  11. FLUCONAZOLE [Concomitant]
     Active Substance: FLUCONAZOLE
     Indication: Product used for unknown indication
     Dosage: FLUCONAZOLE 100 MG TABLET
     Route: 065
  12. MELATONIN [Concomitant]
     Active Substance: MELATONIN
     Indication: Product used for unknown indication
     Dosage: MELATONIN 10 MG CAPSULE
     Route: 065
  13. METOPROLOL SUCCINATE [Concomitant]
     Active Substance: METOPROLOL SUCCINATE
     Indication: Arrhythmia
     Dosage: METOPROLOL SUCCINATE ER 25 MG CAPSULE SPRINKLE, EXT. RELEASE 24 HR
     Route: 048
     Dates: start: 20191006
  14. SIMVASTATIN [Concomitant]
     Active Substance: SIMVASTATIN
     Indication: Product used for unknown indication
     Dosage: SIMVASTATIN 40 MG TABLET
     Route: 065
  15. VITAMIN C [Concomitant]
     Active Substance: ASCORBIC ACID
     Indication: Product used for unknown indication
     Dosage: VITAMIN C 500 MG TABLET
     Route: 065
  16. ONDANSETRON [Concomitant]
     Active Substance: ONDANSETRON
     Indication: Product used for unknown indication
     Dosage: ONDANSETRON 8 MG DISINTEGRATING TABLET
     Route: 065
  17. ALUMINUM HYDROXIDE\MAGNESIUM CARBONATE [Concomitant]
     Active Substance: ALUMINUM HYDROXIDE\MAGNESIUM CARBONATE
     Indication: Gastrooesophageal reflux disease
     Dosage: 20 MG BID
     Route: 048
     Dates: start: 20220414
  18. DARZALEX FASPRO [Concomitant]
     Active Substance: DARATUMUMAB\HYALURONIDASE-FIHJ
     Indication: Plasma cell myeloma
     Dosage: 1800 MG MONTHLY
     Route: 042
     Dates: start: 20210414

REACTIONS (1)
  - Pneumonitis [Recovered/Resolved]

NARRATIVE: CASE EVENT DATE: 20220302
